FAERS Safety Report 4481124-X (Version None)
Quarter: 2004Q4

REPORT INFORMATION
  Report Type: 
  Country: None (occurrence: None)
  Receive Date: 20041021
  Receipt Date: 20041014
  Transmission Date: 20050328
  Serious: Yes (Hospitalization)
  Sender: FDA-Public Use
  Company Number: BR-MERCK-0410BRA00373

PATIENT
  Age: 87 Year
  Sex: Female

DRUGS (2)
  1. VIOXX [Suspect]
     Indication: ARTHRALGIA
     Route: 048
     Dates: start: 20030228, end: 20030401
  2. VIOXX [Suspect]
     Route: 048
     Dates: start: 20030401, end: 20040501

REACTIONS (2)
  - HIP FRACTURE [None]
  - UTERINE NEOPLASM [None]
